FAERS Safety Report 8250113-1 (Version None)
Quarter: 2012Q1

REPORT INFORMATION
  Report Type: 
  Country: None (occurrence: None)
  Receive Date: 20120319
  Receipt Date: 20090609
  Transmission Date: 20120608
  Serious: Yes (Hospitalization, Other)
  Sender: FDA-Public Use
  Company Number: PHEH2009US06060

PATIENT
  Age: 63 Year
  Sex: Male

DRUGS (2)
  1. TEKTURNA HCT [Suspect]
     Dosage: 300/25MG, QD, ORAL
     Route: 048
  2. AVAPRO [Suspect]

REACTIONS (4)
  - PANCREATITIS [None]
  - CHOLECYSTECTOMY [None]
  - BLOOD GLUCOSE INCREASED [None]
  - ABDOMINAL PAIN [None]
